FAERS Safety Report 11247370 (Version 2)
Quarter: 2017Q2

REPORT INFORMATION
  Report Type: Spontaneous
  Country: BE (occurrence: BE)
  Receive Date: 20150708
  Receipt Date: 20170609
  Transmission Date: 20170829
  Serious: Yes (Death, Hospitalization)
  Sender: FDA-Public Use
  Company Number: BE-TEVA-576316ISR

PATIENT
  Age: 55 Year
  Sex: Female

DRUGS (2)
  1. DICLOFENAC [Suspect]
     Active Substance: DICLOFENAC
     Indication: ARTHRALGIA
     Dosage: 150 MILLIGRAM DAILY;
     Route: 065
     Dates: start: 2012
  2. ASPIRIN. [Suspect]
     Active Substance: ASPIRIN
     Indication: INTERMITTENT CLAUDICATION
     Dosage: LOW DOSE
     Route: 065
     Dates: start: 2005

REACTIONS (5)
  - Intestine transplant rejection [Fatal]
  - Contraindicated product administered [Unknown]
  - Shock [Fatal]
  - Renal impairment [Unknown]
  - Graft loss [Fatal]
